APPROVED DRUG PRODUCT: DURICEF
Active Ingredient: CEFADROXIL/CEFADROXIL HEMIHYDRATE
Strength: EQ 1GM BASE **Federal Register determination that product was not discontinued or withdrawn for safety or effectiveness reasons**
Dosage Form/Route: TABLET;ORAL
Application: N050528 | Product #001
Applicant: WARNER CHILCOTT INC
Approved: Approved Prior to Jan 1, 1982 | RLD: Yes | RS: No | Type: DISCN